FAERS Safety Report 24702146 (Version 1)
Quarter: 2024Q4

REPORT INFORMATION
  Report Type: Spontaneous
  Country: US (occurrence: US)
  Receive Date: 20241205
  Receipt Date: 20241205
  Transmission Date: 20250115
  Serious: Yes (Hospitalization)
  Sender: SANOFI AVENTIS
  Company Number: US-SA-2024SA357809

PATIENT
  Age: 55 Year
  Sex: Female

DRUGS (1)
  1. DUPIXENT [Suspect]
     Active Substance: DUPILUMAB
     Indication: Asthma
     Dosage: 300 MG QOW
     Route: 058
     Dates: start: 20240701

REACTIONS (5)
  - Cough [Recovering/Resolving]
  - Bronchitis [Recovering/Resolving]
  - Pyrexia [Recovering/Resolving]
  - Hypersensitivity [Recovering/Resolving]
  - Incorrect dose administered [Unknown]

NARRATIVE: CASE EVENT DATE: 20240701
